FAERS Safety Report 6106401-8 (Version None)
Quarter: 2009Q1

REPORT INFORMATION
  Report Type: 
  Country: None (occurrence: None)
  Receive Date: 20090306
  Receipt Date: 20090305
  Transmission Date: 20090719
  Serious: No
  Sender: FDA-Public Use
  Company Number: US-B.I. PHARMACEUTICALS,INC./RIDGEFIELD-2009-BP-02029BP

PATIENT
  Sex: Female

DRUGS (5)
  1. SPIRIVA [Suspect]
     Indication: CHRONIC OBSTRUCTIVE PULMONARY DISEASE
     Dosage: 18MCG
     Route: 055
     Dates: start: 20081001
  2. OXYGEN [Concomitant]
  3. ALBUTEROL [Concomitant]
  4. ADVAIR HFA [Concomitant]
  5. PREDNISONE [Concomitant]
     Dosage: 5MG

REACTIONS (2)
  - BLINDNESS [None]
  - DRUG INEFFECTIVE [None]
